FAERS Safety Report 10181720 (Version 2)
Quarter: 2014Q2

REPORT INFORMATION
  Report Type: Spontaneous
  Country: JP (occurrence: JP)
  Receive Date: 20140519
  Receipt Date: 20140519
  Transmission Date: 20141212
  Serious: Yes (Other)
  Sender: FDA-Public Use
  Company Number: ALCN2014JP002540

PATIENT
  Age: 51 Year
  Sex: Male

DRUGS (7)
  1. AZORGA [Suspect]
     Indication: GLAUCOMA
     Dosage: 1 GTT, BID
     Route: 047
     Dates: start: 20140415, end: 20140417
  2. AZORGA [Suspect]
     Indication: VISUAL FIELD DEFECT
  3. SORASILOL [Concomitant]
     Dosage: 1 DF, UNK
     Route: 048
  4. TAPROS//TAFLUPROST [Concomitant]
     Indication: GLAUCOMA
     Dosage: 1 GTT, QD
     Route: 047
     Dates: start: 2009
  5. DIOVAN [Concomitant]
     Indication: INTRAOCULAR PRESSURE INCREASED
     Dosage: 1 DF, UNK
     Route: 048
  6. ADALAT [Concomitant]
     Dosage: 1 DF, UNK
     Route: 048
  7. NITRIDERM TTS [Concomitant]
     Dosage: 1 DF, UNK
     Route: 062

REACTIONS (4)
  - Fall [Recovered/Resolved]
  - Palpitations [Recovering/Resolving]
  - Dyspnoea [Recovered/Resolved]
  - Chest discomfort [Recovered/Resolved]
